FAERS Safety Report 7473728-7 (Version None)
Quarter: 2011Q2

REPORT INFORMATION
  Report Type: 
  Country: None (occurrence: None)
  Receive Date: 20110511
  Receipt Date: 20110502
  Transmission Date: 20111010
  Serious: No
  Sender: FDA-Public Use
  Company Number: US-ROXANE LABORATORIES, INC.-2011-RO-00413RO

PATIENT
  Sex: Female

DRUGS (5)
  1. ADVIL LIQUI-GELS [Concomitant]
     Indication: MUSCLE SPASMS
  2. ADVIL LIQUI-GELS [Concomitant]
  3. QUININE SULFATE [Concomitant]
     Indication: MUSCLE SPASMS
  4. QUININE SULFATE [Concomitant]
  5. CODEINE SUL TAB [Suspect]
     Indication: PAIN

REACTIONS (3)
  - DRUG INEFFECTIVE [None]
  - HEADACHE [None]
  - CONSTIPATION [None]
